FAERS Safety Report 6493710-6 (Version None)
Quarter: 2009Q4

REPORT INFORMATION
  Report Type: 
  Country: None (occurrence: None)
  Receive Date: 20091214
  Receipt Date: 20091210
  Transmission Date: 20100525
  Serious: Yes (Death)
  Sender: FDA-Public Use
  Company Number: JP-BAYER-200914826BYL

PATIENT
  Age: 73 Year
  Sex: Female

DRUGS (1)
  1. EOB PRIMOVIST INJ. SYRINGE [Suspect]
     Indication: NUCLEAR MAGNETIC RESONANCE IMAGING
     Route: 042
     Dates: start: 20091117, end: 20091117

REACTIONS (6)
  - COUGH [None]
  - DYSPNOEA [None]
  - PULMONARY ALVEOLAR HAEMORRHAGE [None]
  - PYREXIA [None]
  - RESPIRATORY FAILURE [None]
  - TRACHEAL HAEMORRHAGE [None]
